FAERS Safety Report 9694991 (Version 1)
Quarter: 2013Q4

REPORT INFORMATION
  Report Type: Spontaneous
  Country: GB (occurrence: GB)
  Receive Date: 20131119
  Receipt Date: 20131119
  Transmission Date: 20140711
  Serious: Yes (Other)
  Sender: FDA-Public Use
  Company Number: GB-TEVA-444361ISR

PATIENT
  Age: 68 Year
  Sex: Male
  Weight: 84.82 kg

DRUGS (2)
  1. PROPRANOLOL [Suspect]
     Indication: STRESS
     Dosage: 80MG/DAY FOR THE FIRST 28 DAYS, 40MG/DAY TO END OF TREATMENT
     Route: 048
     Dates: end: 201102
  2. PROPRANOLOL [Suspect]
     Indication: STRESS
     Dosage: 80MG/DAY FOR THE FIRST 28 DAYS, 40MG/DAY TO END OF TREATMENT
     Route: 048
     Dates: start: 201004

REACTIONS (8)
  - Raynaud^s phenomenon [Not Recovered/Not Resolved]
  - Rosacea [Not Recovered/Not Resolved]
  - Incorrect dose administered [Unknown]
  - Nasal oedema [Not Recovered/Not Resolved]
  - Erythema [Not Recovered/Not Resolved]
  - Temperature intolerance [Not Recovered/Not Resolved]
  - Chills [Not Recovered/Not Resolved]
  - Angiopathy [Not Recovered/Not Resolved]
